FAERS Safety Report 16989878 (Version 1)
Quarter: 2019Q4

REPORT INFORMATION
  Report Type: Spontaneous
  Country: US (occurrence: US)
  Receive Date: 20191104
  Receipt Date: 20191104
  Transmission Date: 20200122
  Serious: Yes (Death)
  Sender: FDA-Public Use
  Company Number: US-PFIZER INC-2019472488

PATIENT
  Sex: Male

DRUGS (1)
  1. DAURISMO [Suspect]
     Active Substance: GLASDEGIB
     Dosage: UNK

REACTIONS (1)
  - Death [Fatal]
